FAERS Safety Report 25201786 (Version 2)
Quarter: 2025Q3

REPORT INFORMATION
  Report Type: Spontaneous
  Country: US (occurrence: US)
  Receive Date: 20250416
  Receipt Date: 20250809
  Transmission Date: 20251020
  Serious: Yes (Other)
  Sender: ALEXION PHARMACEUTICALS
  Company Number: US-AstraZeneca-CH-00845824A

PATIENT
  Sex: Female

DRUGS (1)
  1. CALQUENCE [Suspect]
     Active Substance: ACALABRUTINIB
     Indication: Mantle cell lymphoma
     Route: 065

REACTIONS (11)
  - Dry eye [Unknown]
  - Facial asymmetry [Unknown]
  - Accommodation disorder [Unknown]
  - Eye haematoma [Unknown]
  - Visual impairment [Unknown]
  - Ocular discomfort [Unknown]
  - Vaginal discharge [Unknown]
  - Postural orthostatic tachycardia syndrome [Unknown]
  - Hypertension [Unknown]
  - Palpitations [Recovered/Resolved]
  - Heart rate increased [Unknown]
